FAERS Safety Report 24267028 (Version 3)
Quarter: 2024Q3

REPORT INFORMATION
  Report Type: Spontaneous
  Country: US (occurrence: US)
  Receive Date: 20240830
  Receipt Date: 20240923
  Transmission Date: 20241017
  Serious: No
  Sender: ROCHE
  Company Number: US-ROCHE-10000065594

PATIENT
  Age: 66 Year
  Sex: Female
  Weight: 64.86 kg

DRUGS (18)
  1. ACTEMRA ACTPEN [Suspect]
     Active Substance: TOCILIZUMAB
     Indication: Headache
     Dosage: INJECTION; ACTPEN
     Route: 065
     Dates: start: 20240815
  2. CALCIUM [Concomitant]
     Active Substance: CALCIUM
     Indication: Bone disorder
     Route: 048
     Dates: start: 2024
  3. METFORMIN [Concomitant]
     Active Substance: METFORMIN HYDROCHLORIDE
     Indication: Product used for unknown indication
     Route: 048
     Dates: start: 2024
  4. GABAPENTIN [Concomitant]
     Active Substance: GABAPENTIN
     Indication: Ill-defined disorder
     Route: 048
     Dates: start: 2021
  5. FLUOXETINE [Concomitant]
     Active Substance: FLUOXETINE HYDROCHLORIDE
     Indication: Hypertension
     Route: 048
     Dates: start: 2024
  6. THIAMINE [Concomitant]
     Active Substance: THIAMINE
     Indication: Product used for unknown indication
     Route: 048
  7. METOPROLOL [Concomitant]
     Active Substance: METOPROLOL
     Indication: Blood pressure measurement
     Route: 048
  8. CETIRIZINE [Concomitant]
     Active Substance: CETIRIZINE HYDROCHLORIDE
     Indication: Diabetes mellitus
     Route: 048
     Dates: start: 2024
  9. ATORVASTATIN [Concomitant]
     Active Substance: ATORVASTATIN
     Indication: Product used for unknown indication
     Route: 048
     Dates: start: 2024
  10. AMLODIPINE BESYLATE\BENAZEPRIL HYDROCHLORIDE [Concomitant]
     Active Substance: AMLODIPINE BESYLATE\BENAZEPRIL HYDROCHLORIDE
     Indication: Blood pressure measurement
     Dosage: 5MG/10MG
     Route: 048
  11. MAGNESIUM OXIDE [Concomitant]
     Active Substance: MAGNESIUM OXIDE
     Indication: Product used for unknown indication
     Route: 048
     Dates: start: 2024
  12. FAMOTIDINE [Concomitant]
     Active Substance: FAMOTIDINE
     Indication: Blood glucose abnormal
     Route: 048
     Dates: start: 202404
  13. ALBUTEROL [Concomitant]
     Active Substance: ALBUTEROL
     Indication: Wheezing
     Route: 055
     Dates: start: 2022
  14. ALBUTEROL [Concomitant]
     Active Substance: ALBUTEROL
     Indication: Dyspnoea
  15. FLONASE [Concomitant]
     Active Substance: FLUTICASONE PROPIONATE
     Indication: Nasal disorder
     Dosage: ONCE IN EACH NOSTRIL
     Route: 055
  16. KETOROLAC [Concomitant]
     Active Substance: KETOROLAC TROMETHAMINE
     Indication: Eye disorder
     Dosage: LEFT EYE
     Route: 031
     Dates: start: 2023
  17. TIMOLOL [Concomitant]
     Active Substance: TIMOLOL
     Indication: Eye disorder
     Dosage: RIGHT EYE
     Route: 031
     Dates: start: 2023
  18. LANTUS [Concomitant]
     Active Substance: INSULIN GLARGINE
     Indication: Blood glucose abnormal
     Dosage: INJECTION IN STOMACH
     Route: 065
     Dates: start: 202404

REACTIONS (6)
  - Off label use [Unknown]
  - Accidental exposure to product [Unknown]
  - Product quality issue [Unknown]
  - No adverse event [Unknown]
  - Wrong technique in product usage process [Unknown]
  - Device leakage [Unknown]

NARRATIVE: CASE EVENT DATE: 20240815
